FAERS Safety Report 8165491-1 (Version None)
Quarter: 2012Q1

REPORT INFORMATION
  Report Type: 
  Country: None (occurrence: None)
  Receive Date: 20120227
  Receipt Date: 20120215
  Transmission Date: 20120608
  Serious: Yes (Other)
  Sender: FDA-Public Use
  Company Number: BR-JNJFOC-20120208638

PATIENT
  Age: 33 Year
  Sex: Female
  Weight: 53 kg

DRUGS (8)
  1. DIPYRONE TAB [Concomitant]
     Indication: FIBROMYALGIA
     Route: 065
     Dates: start: 20090101
  2. REMICADE [Suspect]
     Indication: RHEUMATOID ARTHRITIS
     Route: 042
     Dates: start: 20061001
  3. OMEPRAZOLE [Concomitant]
     Indication: ABDOMINAL PAIN UPPER
     Route: 065
     Dates: start: 20090101
  4. REMICADE [Suspect]
     Route: 042
     Dates: start: 20110101
  5. METHOTREXATE [Concomitant]
     Indication: RHEUMATOID ARTHRITIS
     Route: 065
     Dates: start: 20090101
  6. ACETAMINOPHEN [Concomitant]
     Indication: FIBROMYALGIA
     Route: 065
     Dates: start: 20090101
  7. ARAVA [Suspect]
     Indication: RHEUMATOID ARTHRITIS
     Route: 065
     Dates: start: 20110101, end: 20111001
  8. PREDNISONE TAB [Concomitant]
     Indication: ANTIINFLAMMATORY THERAPY
     Route: 065
     Dates: start: 20090101

REACTIONS (13)
  - ABDOMINAL PAIN UPPER [None]
  - GASTROINTESTINAL PAIN [None]
  - INSOMNIA [None]
  - INFUSION RELATED REACTION [None]
  - GAIT DISTURBANCE [None]
  - INAPPROPRIATE SCHEDULE OF DRUG ADMINISTRATION [None]
  - PAIN [None]
  - WEIGHT INCREASED [None]
  - MALAISE [None]
  - DYSPNOEA [None]
  - PALPITATIONS [None]
  - INCORRECT DRUG ADMINISTRATION DURATION [None]
  - DRUG HYPERSENSITIVITY [None]
